FAERS Safety Report 7645636-X (Version None)
Quarter: 2011Q3

REPORT INFORMATION
  Report Type: 
  Country: None (occurrence: None)
  Receive Date: 20110729
  Receipt Date: 20110721
  Transmission Date: 20111222
  Serious: Yes (Hospitalization)
  Sender: FDA-Public Use
  Company Number: PHHY2011IT66733

PATIENT
  Sex: Male

DRUGS (4)
  1. OXALIPLATIN [Suspect]
     Indication: METASTASES TO LIVER
     Dosage: 150 MG, UNK
     Route: 042
     Dates: start: 20110423, end: 20110426
  2. BEVACIZUMAB [Concomitant]
  3. GRANISETRON [Concomitant]
  4. FOLIC ACID [Concomitant]

REACTIONS (3)
  - PRESYNCOPE [None]
  - PARAESTHESIA ORAL [None]
  - SPEECH DISORDER [None]
